FAERS Safety Report 25743344 (Version 1)
Quarter: 2025Q3

REPORT INFORMATION
  Report Type: Spontaneous
  Country: JP (occurrence: JP)
  Receive Date: 20250830
  Receipt Date: 20250830
  Transmission Date: 20251020
  Serious: Yes (Other)
  Sender: UCB
  Company Number: JP-UCBJ-CD202510969UCBPHAPROD

PATIENT
  Age: 5 Decade
  Sex: Female

DRUGS (8)
  1. VIMPAT [Suspect]
     Active Substance: LACOSAMIDE
     Indication: Product used for unknown indication
     Route: 048
     Dates: start: 20240904
  2. VIMPAT [Suspect]
     Active Substance: LACOSAMIDE
     Route: 048
  3. VIMPAT [Suspect]
     Active Substance: LACOSAMIDE
     Route: 048
  4. VIMPAT [Suspect]
     Active Substance: LACOSAMIDE
     Route: 048
  5. LEVETIRACETAM [Suspect]
     Active Substance: LEVETIRACETAM
     Indication: Product used for unknown indication
     Route: 048
  6. PERAMPANEL [Concomitant]
     Active Substance: PERAMPANEL
     Indication: Product used for unknown indication
     Dosage: 2 MILLIGRAM, ONCE DAILY (QD)
  7. PERAMPANEL [Concomitant]
     Active Substance: PERAMPANEL
     Dosage: 4 MILLIGRAM, ONCE DAILY (QD)
  8. PERAMPANEL [Concomitant]
     Active Substance: PERAMPANEL
     Dosage: 2 MILLIGRAM, ONCE DAILY (QD)

REACTIONS (3)
  - Hypophagia [Recovered/Resolved]
  - Depressive symptom [Unknown]
  - Asthenia [Unknown]

NARRATIVE: CASE EVENT DATE: 20241015
